FAERS Safety Report 6472730-1 (Version None)
Quarter: 2009Q4

REPORT INFORMATION
  Report Type: 
  Country: None (occurrence: None)
  Receive Date: 20091201
  Receipt Date: 20091120
  Transmission Date: 20100525
  Serious: Yes (Other)
  Sender: FDA-Public Use
  Company Number: 2009SP038286

PATIENT
  Age: 32 Year
  Sex: Female
  Weight: 57 kg

DRUGS (2)
  1. MERCILON CONTI (DESOGESTREL/ETHINYLESTRADIOL) [Suspect]
     Indication: CONTRACEPTION
     Dosage: ;UNK;PO, ;UNK;PO
     Route: 048
     Dates: start: 20090901, end: 20091001
  2. MERCILON CONTI (DESOGESTREL/ETHINYLESTRADIOL) [Suspect]
     Indication: CONTRACEPTION
     Dosage: ;UNK;PO, ;UNK;PO
     Route: 048
     Dates: start: 20091101

REACTIONS (3)
  - MENOMETRORRHAGIA [None]
  - MOOD SWINGS [None]
  - PNEUMONIA [None]
